FAERS Safety Report 9163073 (Version 1)
Quarter: 2013Q1

REPORT INFORMATION
  Report Type: Spontaneous
  Country: GB (occurrence: None)
  Receive Date: 20130227
  Receipt Date: 20130227
  Transmission Date: 20140127
  Serious: Yes (Life-Threatening, Hospitalization)
  Sender: FDA-Public Use
  Company Number: AUR-APL-2013-01548

PATIENT
  Age: 81 Year
  Sex: Male

DRUGS (2)
  1. MIRTAZAPINE (MIRTAZAPINE) [Suspect]
     Indication: DEPRESSION
     Route: 048
     Dates: start: 20121003, end: 20121015
  2. HYDROXOCOBALAMIN [Concomitant]

REACTIONS (4)
  - Vitamin B12 deficiency [None]
  - Mobility decreased [None]
  - Dyskinesia [None]
  - Confusional state [None]
